FAERS Safety Report 16665817 (Version 1)
Quarter: 2019Q3

REPORT INFORMATION
  Report Type: Spontaneous
  Country: FR (occurrence: FR)
  Receive Date: 20190804
  Receipt Date: 20190804
  Transmission Date: 20191004
  Serious: Yes (Hospitalization)
  Sender: FDA-Public Use
  Company Number: FR-ENDO PHARMACEUTICALS INC-2019-106735

PATIENT
  Age: 31 Year
  Sex: Female

DRUGS (2)
  1. POLARAMINE [Concomitant]
     Active Substance: DEXCHLORPHENIRAMINE MALEATE
     Indication: ANAPHYLACTIC REACTION
     Dosage: UNK UNKNOWN, UNKNOWN
     Route: 042
  2. ADRENALIN [Suspect]
     Active Substance: EPINEPHRINE
     Indication: ANAPHYLACTIC REACTION
     Dosage: 0.1 MG, UNKNOWN (TOTAL 0.8MG GIVEN)
     Route: 042

REACTIONS (3)
  - Incorrect route of product administration [Unknown]
  - Cardiogenic shock [Recovered/Resolved]
  - Incorrect dose administered [Unknown]
